FAERS Safety Report 7921962-1 (Version None)
Quarter: 2011Q4

REPORT INFORMATION
  Report Type: 
  Country: None (occurrence: None)
  Receive Date: 20111117
  Receipt Date: 20111109
  Transmission Date: 20120403
  Serious: Yes (Hospitalization)
  Sender: FDA-Public Use
  Company Number: FR-BAYER-2011-109585

PATIENT
  Age: 77 Year
  Sex: Female

DRUGS (8)
  1. ATACAND HCT [Suspect]
     Dosage: 8 MG, QD
     Route: 048
     Dates: end: 20110606
  2. LASIX [Suspect]
     Dosage: 20 MG, QD
     Route: 048
     Dates: end: 20110606
  3. BISOPROLOL FUMARATE [Concomitant]
  4. MINISINTROM [Concomitant]
  5. ALLOPURINOL [Concomitant]
     Dosage: UNK
  6. CORDARONE [Concomitant]
  7. FENOFIBRATE [Suspect]
     Dosage: 200 MG, QD
     Route: 048
     Dates: end: 20110606
  8. ACARBOSE [Suspect]
     Dosage: 50 MG, QD
     Route: 048
     Dates: end: 20110606

REACTIONS (1)
  - RENAL FAILURE ACUTE [None]
